FAERS Safety Report 8355518-6 (Version None)
Quarter: 2012Q2

REPORT INFORMATION
  Report Type: 
  Country: None (occurrence: None)
  Receive Date: 20120512
  Receipt Date: 20120416
  Transmission Date: 20120825
  Serious: Yes (Other)
  Sender: FDA-Public Use
  Company Number: PHHY2012AU027203

PATIENT
  Sex: Female
  Weight: 93 kg

DRUGS (6)
  1. SYNTOCINON [Suspect]
     Indication: THIRD STAGE POSTPARTUM HAEMORRHAGE
  2. SYNTOCINON [Suspect]
     Indication: LABOUR PAIN
     Dosage: 0.5 IU/ML, UNK
     Route: 042
     Dates: start: 20120327
  3. VOLTAREN [Concomitant]
     Dosage: 50 MG, TID
     Dates: start: 20120327, end: 20120401
  4. SODIUM CITRATE [Concomitant]
     Dosage: 30 ML, UNK
     Dates: start: 20120327
  5. ACETAMINOPHEN [Concomitant]
     Dosage: 1 MG, UNK
     Dates: start: 20120327, end: 20120401
  6. TEGRETOL [Concomitant]
     Indication: EPILEPSY
     Dosage: 200 MG, UNK
     Dates: start: 20120327

REACTIONS (2)
  - BLOOD PRESSURE DECREASED [None]
  - POSTPARTUM HAEMORRHAGE [None]
